FAERS Safety Report 23861604 (Version 1)
Quarter: 2024Q2

REPORT INFORMATION
  Report Type: Other
  Country: CA (occurrence: CA)
  Receive Date: 20240516
  Receipt Date: 20240516
  Transmission Date: 20240715
  Serious: Yes (Other)
  Sender: FDA-Public Use
  Company Number: CA-APOTEX-2024AP005678

PATIENT
  Age: 34 Year
  Sex: Female

DRUGS (3)
  1. PREDNISONE [Suspect]
     Active Substance: PREDNISONE
     Indication: Cough
     Dosage: UNK
     Route: 065
  2. AMOXICILLIN AND CLAVULANATE POTASSIUM [Suspect]
     Active Substance: AMOXICILLIN\CLAVULANATE POTASSIUM
     Indication: Cough
     Dosage: UNK
     Route: 065
  3. MEPOLIZUMAB [Suspect]
     Active Substance: MEPOLIZUMAB
     Indication: Asthma
     Dosage: 100 MILLIGRAM, ONCE EVERY 4 WEEKS
     Route: 058

REACTIONS (7)
  - Productive cough [Unknown]
  - Sputum abnormal [Unknown]
  - Sputum discoloured [Unknown]
  - Exposure during pregnancy [Unknown]
  - Lower respiratory tract infection [Unknown]
  - Malaise [Unknown]
  - Sinusitis [Unknown]
